FAERS Safety Report 6958331-7 (Version None)
Quarter: 2010Q3

REPORT INFORMATION
  Report Type: 
  Country: None (occurrence: None)
  Receive Date: 20100831
  Receipt Date: 20100823
  Transmission Date: 20110219
  Serious: Yes (Life-Threatening)
  Sender: FDA-Public Use
  Company Number: B0671580A

PATIENT
  Sex: Female
  Weight: 81 kg

DRUGS (6)
  1. AVANDAMET [Suspect]
     Route: 048
     Dates: start: 20100211, end: 20100216
  2. RISIDON [Concomitant]
     Dosage: 1000MG THREE TIMES PER DAY
     Route: 048
     Dates: start: 20050101, end: 20100211
  3. DIAMICRON [Concomitant]
     Dosage: 80MG PER DAY
     Route: 048
     Dates: start: 20050101
  4. DORMICUM [Concomitant]
     Indication: INSOMNIA
     Dosage: 15MG PER DAY
     Route: 048
     Dates: start: 20050101
  5. BUNIL [Concomitant]
     Indication: ANXIETY
     Dosage: 25MG PER DAY
     Route: 048
     Dates: start: 20050101
  6. TENORETIC 100 [Concomitant]
     Route: 048
     Dates: start: 20050101

REACTIONS (6)
  - CYANOSIS [None]
  - DYSPNOEA [None]
  - HEADACHE [None]
  - NAIL AVULSION [None]
  - NAIL BED BLEEDING [None]
  - OEDEMA PERIPHERAL [None]
